FAERS Safety Report 12948451 (Version 1)
Quarter: 2016Q4

REPORT INFORMATION
  Report Type: Spontaneous
  Country: US (occurrence: US)
  Receive Date: 20161116
  Receipt Date: 20161116
  Transmission Date: 20170207
  Serious: No
  Sender: FDA-Public Use
  Company Number: US-BAUSCH-BL-2016-007731

PATIENT
  Age: 63 Year
  Sex: Female

DRUGS (1)
  1. LOTEMAX [Suspect]
     Active Substance: LOTEPREDNOL ETABONATE
     Indication: CONJUNCTIVITIS ALLERGIC
     Route: 047
     Dates: start: 20160328

REACTIONS (3)
  - Dizziness [Unknown]
  - Off label use [Unknown]
  - Asthenopia [Unknown]

NARRATIVE: CASE EVENT DATE: 20160328
